FAERS Safety Report 10151056 (Version 1)
Quarter: 2014Q2

REPORT INFORMATION
  Report Type: Spontaneous
  Country: US (occurrence: US)
  Receive Date: 20140502
  Receipt Date: 20140502
  Transmission Date: 20141212
  Serious: Yes (Congenital Anomaly, Other)
  Sender: FDA-Public Use
  Company Number: US-ABBVIE-14P-163-1230124-00

PATIENT
  Sex: Male

DRUGS (1)
  1. DEPAKOTE [Suspect]
     Indication: MATERNAL EXPOSURE TIMING UNSPECIFIED
     Route: 064

REACTIONS (27)
  - Pain [Unknown]
  - Congenital anomaly [Unknown]
  - Foetal exposure during pregnancy [Unknown]
  - Physical disability [Unknown]
  - Cognitive disorder [Recovering/Resolving]
  - Nervous system disorder [Unknown]
  - Abnormal behaviour [Recovering/Resolving]
  - Activities of daily living impaired [Unknown]
  - Activities of daily living impaired [Unknown]
  - Torticollis [Unknown]
  - Dacryostenosis congenital [Unknown]
  - Ear malformation [Unknown]
  - Low set ears [Unknown]
  - Syndactyly [Unknown]
  - Hemiparesis [Unknown]
  - Strabismus [Unknown]
  - Ear tube insertion [Unknown]
  - Ankyloglossia congenital [Unknown]
  - Attention deficit/hyperactivity disorder [Unknown]
  - Developmental delay [Unknown]
  - Sensory disturbance [Unknown]
  - Anxiety disorder [Unknown]
  - Encephalopathy [Unknown]
  - Anhedonia [Unknown]
  - Economic problem [Unknown]
  - Injury [Unknown]
  - Emotional distress [Unknown]
